FAERS Safety Report 12384812 (Version 1)
Quarter: 2016Q2

REPORT INFORMATION
  Report Type: Spontaneous
  Country: US (occurrence: None)
  Receive Date: 20160518
  Receipt Date: 20160518
  Transmission Date: 20160815
  Serious: Yes (Other)
  Sender: FDA-Public Use
  Company Number: None

PATIENT
  Sex: Female

DRUGS (1)
  1. DACLATASVIR 60MG BRISTOL-MYERS SQUIBB [Suspect]
     Active Substance: DACLATASVIR
     Route: 048
     Dates: start: 20150831, end: 20151026

REACTIONS (2)
  - Pain [None]
  - Back pain [None]

NARRATIVE: CASE EVENT DATE: 20151026
